FAERS Safety Report 8420284-2 (Version None)
Quarter: 2012Q2

REPORT INFORMATION
  Report Type: 
  Country: None (occurrence: None)
  Receive Date: 20120607
  Receipt Date: 20120524
  Transmission Date: 20120825
  Serious: Yes (Other)
  Sender: FDA-Public Use
  Company Number: CHPA2012US011461

PATIENT
  Age: 55 Year
  Sex: Male

DRUGS (4)
  1. AMARYL [Concomitant]
     Indication: PANCREATIC INJURY
     Dosage: UNK, UNK
  2. TRANSDERM SCOP [Suspect]
     Indication: MENIERE'S DISEASE
     Dosage: 1 PATCH EVERY 3 DAYS
     Route: 062
     Dates: start: 20020101
  3. TRANSDERM SCOP [Suspect]
     Dosage: 1 PATCH EVERY 10 DAYS
     Route: 062
  4. PENICILLIN [Concomitant]
     Indication: PANCREATIC INJURY
     Dosage: UNK, UNK

REACTIONS (10)
  - NEUROPATHY PERIPHERAL [None]
  - OFF LABEL USE [None]
  - CONCUSSION [None]
  - FALL [None]
  - UNDERDOSE [None]
  - MYOCARDIAL INFARCTION [None]
  - NAUSEA [None]
  - INAPPROPRIATE SCHEDULE OF DRUG ADMINISTRATION [None]
  - CEREBROVASCULAR ACCIDENT [None]
  - THERAPEUTIC RESPONSE UNEXPECTED [None]
